FAERS Safety Report 7676380-0 (Version None)
Quarter: 2011Q3

REPORT INFORMATION
  Report Type: 
  Country: None (occurrence: None)
  Receive Date: 20110811
  Receipt Date: 20110808
  Transmission Date: 20111222
  Serious: No
  Sender: FDA-Public Use
  Company Number: US-PFIZER INC-2011182707

PATIENT
  Sex: Female
  Weight: 69 kg

DRUGS (8)
  1. METFORMIN [Concomitant]
     Dosage: 1000 MG, 2X/DAY
  2. DETROL LA [Concomitant]
     Dosage: 4 MG, DAILY
     Route: 048
  3. OMEPRAZOLE [Concomitant]
     Dosage: 40 MG, 2X/DAY
     Route: 048
  4. LIPITOR [Suspect]
     Indication: BLOOD CHOLESTEROL ABNORMAL
     Dosage: 20 MG, DAILY
     Route: 048
     Dates: start: 20110101
  5. AVAPRO [Concomitant]
     Dosage: 300 MG, DAILY
     Route: 048
  6. ONGLYZA [Concomitant]
     Dosage: 2.5 MG, DAILY
     Route: 048
  7. TRIAMTERENE AND HYDROCHLOROTHIAZIDE [Concomitant]
     Dosage: 75/50
  8. SYNTHROID [Concomitant]
     Dosage: 75 UG, DAILY
     Route: 048

REACTIONS (2)
  - ERUCTATION [None]
  - FLATULENCE [None]
